FAERS Safety Report 18190282 (Version 4)
Quarter: 2021Q2

REPORT INFORMATION
  Report Type: Report from Study
  Country: US (occurrence: US)
  Receive Date: 20200825
  Receipt Date: 20210621
  Transmission Date: 20210717
  Serious: Yes (Disabling, Other)
  Sender: FDA-Public Use
  Company Number: US-EMD SERONO-9110582

PATIENT
  Age: 58 Year
  Sex: Female

DRUGS (3)
  1. REBIF [Suspect]
     Active Substance: INTERFERON BETA-1A
     Indication: MULTIPLE SCLEROSIS
     Route: 058
     Dates: start: 20140129, end: 20160229
  2. REBIF [Suspect]
     Active Substance: INTERFERON BETA-1A
     Route: 058
     Dates: start: 20190621
  3. MODERNA COVID?19 VACCINE [Concomitant]
     Active Substance: CX-024414
     Indication: COVID-19 IMMUNISATION
     Dosage: 1ST SHOT
     Dates: start: 20210526

REACTIONS (10)
  - Lack of injection site rotation [Recovered/Resolved]
  - Injection site pain [Unknown]
  - Limb discomfort [Unknown]
  - Hypoaesthesia [Unknown]
  - Type 2 diabetes mellitus [Unknown]
  - Blindness unilateral [Not Recovered/Not Resolved]
  - Weight increased [Unknown]
  - Macular degeneration [Unknown]
  - Cataract [Unknown]
  - Hip arthroplasty [Unknown]

NARRATIVE: CASE EVENT DATE: 2018
